FAERS Safety Report 19183162 (Version 1)
Quarter: 2021Q2

REPORT INFORMATION
  Report Type: Spontaneous
  Country: DE (occurrence: DE)
  Receive Date: 20210427
  Receipt Date: 20210427
  Transmission Date: 20210717
  Serious: Yes (Other)
  Sender: FDA-Public Use
  Company Number: DE-SA-2021SA132119

PATIENT
  Age: 28 Year
  Sex: Female

DRUGS (1)
  1. ALEMTUZUMAB [Suspect]
     Active Substance: ALEMTUZUMAB
     Indication: MULTIPLE SCLEROSIS
     Dosage: INFUSION
     Route: 041

REACTIONS (3)
  - Proteinuria [Recovering/Resolving]
  - IgA nephropathy [Recovering/Resolving]
  - Haematuria [Recovering/Resolving]
